FAERS Safety Report 4546167-6 (Version None)
Quarter: 2005Q1

REPORT INFORMATION
  Report Type: 
  Country: None (occurrence: None)
  Receive Date: 20050103
  Receipt Date: 20041223
  Transmission Date: 20050727
  Serious: Yes (Congenital Anomaly)
  Sender: FDA-Public Use
  Company Number: 2004GB03198

PATIENT
  Sex: Female

DRUGS (1)
  1. ZESTRIL [Suspect]
     Dosage: 10 MG DAILY TPL
     Route: 061

REACTIONS (5)
  - BONE DEVELOPMENT ABNORMAL [None]
  - CONGENITAL ANOMALY [None]
  - DRUG EXPOSURE DURING PREGNANCY [None]
  - PERITONEAL DIALYSIS [None]
  - RENAL FAILURE ACUTE [None]
